FAERS Safety Report 9681103 (Version 2)
Quarter: 2014Q1

REPORT INFORMATION
  Report Type: Spontaneous
  Country: US (occurrence: US)
  Receive Date: 20131111
  Receipt Date: 20140121
  Transmission Date: 20141002
  Serious: Yes (Other)
  Sender: FDA-Public Use
  Company Number: US-SA-2013SA114009

PATIENT
  Age: 57 Year
  Sex: Female
  Weight: 58.74 kg

DRUGS (36)
  1. FLUDARA [Suspect]
     Indication: CHRONIC LYMPHOCYTIC LEUKAEMIA
     Dosage: DOSE - 30-38 MG
     Route: 042
     Dates: start: 20120619, end: 20120913
  2. RITUXIMAB [Suspect]
     Indication: CHRONIC LYMPHOCYTIC LEUKAEMIA
     Dosage: DOSE - 575-765
     Route: 042
     Dates: start: 20120529, end: 20120529
  3. RITUXIMAB [Suspect]
     Indication: CHRONIC LYMPHOCYTIC LEUKAEMIA
     Dosage: DOSE - 575-765
     Route: 042
     Dates: start: 20120911, end: 20120911
  4. CYTOXAN [Suspect]
     Indication: CHRONIC LYMPHOCYTIC LEUKAEMIA
     Dosage: DOSE - 285-380?FREQUENCY - MONTHLY 3 DAY
     Route: 042
     Dates: start: 20120529, end: 20120529
  5. CYTOXAN [Suspect]
     Indication: CHRONIC LYMPHOCYTIC LEUKAEMIA
     Dosage: DOSE - 285-380?FREQUENCY - MONTHLY 3 DAY
     Route: 042
     Dates: start: 20120913, end: 20120913
  6. CIPRODEX [Concomitant]
     Dates: start: 20120726
  7. ZOVIRAX [Concomitant]
     Dates: start: 20120822
  8. ALPRAZOLAM [Concomitant]
     Dates: start: 20120809
  9. ANUCORT-HC [Concomitant]
     Dates: start: 20131011
  10. HYDROCORTISONE ACETATE [Concomitant]
     Dates: start: 20131011
  11. CARISOPRODOL [Concomitant]
     Dates: start: 20121102
  12. CEFTIN [Concomitant]
     Dates: start: 20131004
  13. COUMADIN [Concomitant]
     Dates: start: 20121026
  14. FLURAZEPAM HYDROCHLORIDE [Concomitant]
     Dates: start: 20130610
  15. GRANISETRON HYDROCHLORIDE [Concomitant]
     Dosage: SOLUTION
     Dates: start: 20120619, end: 20131205
  16. HYDROCODONE/PARACETAMOL [Concomitant]
     Dates: start: 20121102
  17. LEVOTHYROXINE SODIUM [Concomitant]
     Dates: start: 20130412
  18. LUNESTA [Concomitant]
     Dates: start: 20120927
  19. METOPROLOL TARTRATE [Concomitant]
     Dates: start: 20130604
  20. NITROSTAT [Concomitant]
     Route: 060
     Dates: start: 20130916
  21. PALONOSETRON HYDROCHLORIDE [Concomitant]
     Dosage: SOLUTION
     Dates: start: 20120621, end: 20130405
  22. PEGFILGRASTIM [Concomitant]
     Dosage: SOLUTION
     Dates: start: 20120622, end: 20130920
  23. PREDNISONE [Concomitant]
     Dates: start: 20130228
  24. PROMETHAZINE HYDROCHLORIDE [Concomitant]
     Dates: start: 20130118
  25. SINGULAIR [Concomitant]
     Dates: start: 20121119
  26. SOMA [Concomitant]
     Dates: start: 20121009
  27. TEMAZEPAM [Concomitant]
     Dates: start: 20130610
  28. TRAMADOL HYDROCHLORIDE [Concomitant]
     Dates: start: 20130619
  29. VENLAFAXINE HYDROCHLORIDE [Concomitant]
     Dosage: CAPSULE SR 24 HR
     Dates: start: 20130426
  30. VIDAZA [Concomitant]
     Dosage: SUSPENSION WHEN RECONSTITUTED
     Dates: start: 20130401, end: 20131205
  31. WARFARIN SODIUM [Concomitant]
     Dates: start: 20130426
  32. XANAX [Concomitant]
     Dates: start: 20130611
  33. ACETAMINOPHEN [Concomitant]
     Dosage: TAKE 1000 MG TABLET ORAL ONCE
     Route: 048
     Dates: start: 20120619, end: 20130806
  34. BENADRYL [Concomitant]
     Route: 042
     Dates: start: 20130806, end: 20130806
  35. CYCLOPHOSPHAMIDE [Concomitant]
     Route: 042
     Dates: start: 20120619, end: 20120913
  36. DALMANE [Concomitant]
     Dosage: TAKE 1 CAPSULLE ORAL AT BEDTIME
     Route: 048
     Dates: start: 20120928, end: 20121119

REACTIONS (1)
  - Myelodysplastic syndrome [Unknown]
